FAERS Safety Report 11097597 (Version 1)
Quarter: 2015Q2

REPORT INFORMATION
  Report Type: Spontaneous
  Country: US (occurrence: US)
  Receive Date: 20150507
  Receipt Date: 20150507
  Transmission Date: 20150821
  Serious: No
  Sender: FDA-Public Use
  Company Number: US-GLAXOSMITHKLINE-US2015060810

PATIENT
  Age: 27 Year
  Sex: Female

DRUGS (1)
  1. ABREVA [Suspect]
     Active Substance: DOCOSANOL
     Indication: ORAL HERPES
     Dosage: UNK
     Dates: start: 20150430, end: 20150504

REACTIONS (6)
  - Impaired healing [Not Recovered/Not Resolved]
  - Application site rash [Not Recovered/Not Resolved]
  - Oral herpes [Not Recovered/Not Resolved]
  - Lip haemorrhage [Not Recovered/Not Resolved]
  - Condition aggravated [Not Recovered/Not Resolved]
  - Laceration [Unknown]
